FAERS Safety Report 18487144 (Version 1)
Quarter: 2020Q4

REPORT INFORMATION
  Report Type: Spontaneous
  Country: BE (occurrence: BE)
  Receive Date: 20201110
  Receipt Date: 20201110
  Transmission Date: 20210114
  Serious: Yes (Hospitalization, Other)
  Sender: FDA-Public Use
  Company Number: BE-MYLANLABS-2020M1093110

PATIENT
  Age: 66 Year
  Sex: Male
  Weight: 73.3 kg

DRUGS (5)
  1. GAMBARAN [Suspect]
     Active Substance: NABUMETONE
     Indication: PRODUCT USED FOR UNKNOWN INDICATION
     Dosage: UNK
  2. OSILODROSTAT [Suspect]
     Active Substance: OSILODROSTAT
     Dosage: 1 MG, BID (12 HOURS)
     Route: 048
     Dates: start: 20201005
  3. PARACETAMOL [Suspect]
     Active Substance: ACETAMINOPHEN
     Indication: PRODUCT USED FOR UNKNOWN INDICATION
     Dosage: UNK
     Route: 042
  4. LITICAN /00690802/ [Suspect]
     Active Substance: ALIZAPRIDE HYDROCHLORIDE
     Indication: PRODUCT USED FOR UNKNOWN INDICATION
     Dosage: UNK
     Route: 065
  5. OSILODROSTAT [Suspect]
     Active Substance: OSILODROSTAT
     Indication: CUSHING^S SYNDROME
     Dosage: 1 MG, BID (12 HOURS)
     Route: 048
     Dates: start: 20190412, end: 20200914

REACTIONS (5)
  - COVID-19 [Not Recovered/Not Resolved]
  - Malaise [Not Recovered/Not Resolved]
  - Nausea [Not Recovered/Not Resolved]
  - Fall [Not Recovered/Not Resolved]
  - Fatigue [Not Recovered/Not Resolved]

NARRATIVE: CASE EVENT DATE: 20200912
